FAERS Safety Report 10140525 (Version 3)
Quarter: 2014Q2

REPORT INFORMATION
  Report Type: Report from Study
  Country: US (occurrence: US)
  Receive Date: 20140429
  Receipt Date: 20140507
  Transmission Date: 20141212
  Serious: Yes (Other)
  Sender: FDA-Public Use
  Company Number: US-ACTELION-A-US2014-97197

PATIENT
  Age: 56 Year
  Sex: Female

DRUGS (3)
  1. VELETRI [Suspect]
     Indication: PULMONARY ARTERIAL HYPERTENSION
     Dosage: 10 NG/KG, PER MIN
     Route: 042
     Dates: start: 20140312
  2. COUMADIN [Concomitant]
  3. REVATIO [Concomitant]

REACTIONS (4)
  - Blood creatinine increased [Recovered/Resolved]
  - Dizziness [Unknown]
  - Headache [Unknown]
  - Pain in extremity [Unknown]
